FAERS Safety Report 20896887 (Version 1)
Quarter: 2022Q2

REPORT INFORMATION
  Report Type: Other
  Country: TR (occurrence: None)
  Receive Date: 20220531
  Receipt Date: 20220531
  Transmission Date: 20220720
  Serious: Yes (Other)
  Sender: FDA-Public Use
  Company Number: TR-ROCHE-3104201

PATIENT

DRUGS (1)
  1. TOCILIZUMAB [Suspect]
     Active Substance: TOCILIZUMAB
     Indication: COVID-19
     Dosage: THE FIRST DOSE WAS SET AT 4-8 MG/KG
     Route: 042

REACTIONS (2)
  - Neutropenia [Unknown]
  - Off label use [Unknown]
